FAERS Safety Report 18372019 (Version 1)
Quarter: 2020Q4

REPORT INFORMATION
  Report Type: Spontaneous
  Country: NL (occurrence: NL)
  Receive Date: 20201012
  Receipt Date: 20201012
  Transmission Date: 20210114
  Serious: Yes (Death)
  Sender: FDA-Public Use
  Company Number: NL-TEVA-2020-NL-1836511

PATIENT
  Sex: Female

DRUGS (1)
  1. CAPECITABINE TABLET FO 500MG / BRAND NAME NOT SPECIFIED [Suspect]
     Active Substance: CAPECITABINE
     Indication: BREAST CANCER METASTATIC
     Dosage: 2500 MG / M2 PER DAY SPREAD OVER TWICE
     Dates: start: 201910, end: 20191016

REACTIONS (1)
  - Colitis [Fatal]
